FAERS Safety Report 24110062 (Version 2)
Quarter: 2024Q3

REPORT INFORMATION
  Report Type: Spontaneous
  Country: RO (occurrence: RO)
  Receive Date: 20240718
  Receipt Date: 20240812
  Transmission Date: 20241017
  Serious: No
  Sender: OTSUKA
  Company Number: RO-MEDO2008-000973

PATIENT
  Age: 32 Year
  Sex: Male

DRUGS (1)
  1. ARIPIPRAZOLE [Suspect]
     Active Substance: ARIPIPRAZOLE
     Indication: Bipolar disorder
     Dosage: UNK
     Route: 065

REACTIONS (1)
  - No adverse event [Unknown]
